FAERS Safety Report 12684894 (Version 1)
Quarter: 2016Q3

REPORT INFORMATION
  Report Type: Spontaneous
  Country: US (occurrence: US)
  Receive Date: 20160825
  Receipt Date: 20160825
  Transmission Date: 20161109
  Serious: No
  Sender: FDA-Public Use
  Company Number: US-LPDUSPRD-20160390

PATIENT
  Age: 39 Year
  Sex: Male

DRUGS (1)
  1. HYDRALAZINE HCL INJECTION, USP (0901-25) 20 MG/ML [Suspect]
     Active Substance: HYDRALAZINE HYDROCHLORIDE
     Dosage: DOSE UNKNOWN
     Route: 065

REACTIONS (1)
  - Drug hypersensitivity [Unknown]
